FAERS Safety Report 6615445-9 (Version None)
Quarter: 2010Q1

REPORT INFORMATION
  Report Type: 
  Country: None (occurrence: None)
  Receive Date: 20100305
  Receipt Date: 20100222
  Transmission Date: 20100710
  Serious: Yes (Hospitalization, Other)
  Sender: FDA-Public Use
  Company Number: US-PFIZER INC-2009255654

PATIENT
  Sex: Male

DRUGS (1)
  1. SUTENT [Suspect]
     Indication: METASTATIC RENAL CELL CARCINOMA
     Dosage: 50 MG, 1X/DAY, FOR 28 DAYS EVERY 42 DAYS
     Route: 048
     Dates: start: 20081201, end: 20091130

REACTIONS (15)
  - BLOOD TEST ABNORMAL [None]
  - CHOLELITHIASIS [None]
  - DEPRESSION [None]
  - DISORIENTATION [None]
  - GASTRIC ULCER HAEMORRHAGE [None]
  - HAEMOPTYSIS [None]
  - HYPERAMMONAEMIA [None]
  - NEURALGIA [None]
  - PAIN IN EXTREMITY [None]
  - PANCREATITIS [None]
  - PARAESTHESIA [None]
  - PLATELET COUNT DECREASED [None]
  - PNEUMONIA [None]
  - PULMONARY CONGESTION [None]
  - RIB FRACTURE [None]
